FAERS Safety Report 7141635-5 (Version None)
Quarter: 2010Q4

REPORT INFORMATION
  Report Type: 
  Country: None (occurrence: None)
  Receive Date: 20101207
  Receipt Date: 20101125
  Transmission Date: 20110411
  Serious: Yes (Hospitalization, Other)
  Sender: FDA-Public Use
  Company Number: PHHY2010CA39459

PATIENT
  Sex: Female

DRUGS (4)
  1. SANDOSTATIN LAR [Suspect]
     Indication: SMALL INTESTINE CARCINOMA
     Dosage: 40 MG, EVERY 4 WEEKS
     Route: 030
     Dates: start: 20090129, end: 20101125
  2. SANDOSTATIN LAR [Suspect]
     Dosage: 40 MG, QMO
     Route: 030
  3. NORVASC [Concomitant]
     Dosage: UNK
  4. HALOPERIDOL [Concomitant]
     Dosage: UNK

REACTIONS (5)
  - BLOOD PRESSURE INCREASED [None]
  - DECREASED APPETITE [None]
  - HEART RATE INCREASED [None]
  - INTESTINAL OBSTRUCTION [None]
  - PALLIATIVE CARE [None]
